FAERS Safety Report 21808470 (Version 1)
Quarter: 2023Q1

REPORT INFORMATION
  Report Type: Spontaneous
  Country: FR (occurrence: FR)
  Receive Date: 20230103
  Receipt Date: 20230103
  Transmission Date: 20230418
  Serious: Yes (Other)
  Sender: FDA-Public Use
  Company Number: FR-ViiV Healthcare Limited-FR2022GSK186608

PATIENT
  Sex: Male

DRUGS (11)
  1. LAMIVUDINE [Suspect]
     Active Substance: LAMIVUDINE
     Indication: Acquired immunodeficiency syndrome
     Dosage: UNK
     Route: 065
     Dates: start: 2020
  2. DOLUTEGRAVIR [Suspect]
     Active Substance: DOLUTEGRAVIR
     Indication: Acquired immunodeficiency syndrome
     Dosage: UNK
     Route: 065
     Dates: start: 2020
  3. DORAVIRINE [Suspect]
     Active Substance: DORAVIRINE
     Indication: Acquired immunodeficiency syndrome
     Dosage: UNK
     Route: 065
     Dates: start: 2020
  4. MILTEFOSINE [Suspect]
     Active Substance: MILTEFOSINE
     Indication: Eye disorder
     Dosage: 100 MILLIGRAM, ONCE A DAY (50 MG, BID)
     Route: 048
     Dates: start: 2020
  5. MILTEFOSINE [Suspect]
     Active Substance: MILTEFOSINE
     Indication: Visceral leishmaniasis
  6. DEXAMETHASONE [Concomitant]
     Active Substance: DEXAMETHASONE
     Indication: Visceral leishmaniasis
     Dosage: UNK (EYE DROPS)
     Dates: start: 2020
  7. DEXAMETHASONE [Concomitant]
     Active Substance: DEXAMETHASONE
     Indication: Eye disorder
     Dosage: UNK (SUBCONJUNCTIVAL INJECTIONS)
     Route: 057
     Dates: start: 2020
  8. AMPHOTERICIN B [Concomitant]
     Active Substance: AMPHOTERICIN B
     Indication: Eye disorder
     Dosage: 30 MG/KG (TOTAL DOSE)
     Route: 042
     Dates: start: 2020
  9. AMPHOTERICIN B [Concomitant]
     Active Substance: AMPHOTERICIN B
     Indication: Visceral leishmaniasis
  10. AMPHOTERICIN B [Concomitant]
     Active Substance: AMPHOTERICIN B
     Indication: Visceral leishmaniasis
     Dosage: UNK (EYE DROPS)
     Dates: start: 2020
  11. AMPHOTERICIN B [Concomitant]
     Active Substance: AMPHOTERICIN B
     Indication: Eye disorder
     Dosage: UNK (INTRAVITREAL INJECTION)
     Dates: start: 2020

REACTIONS (6)
  - Uveitis [Unknown]
  - Conjunctivitis [Unknown]
  - Visceral leishmaniasis [Unknown]
  - Eye disorder [Unknown]
  - Treatment noncompliance [Unknown]
  - Disease recurrence [Unknown]

NARRATIVE: CASE EVENT DATE: 20211101
